FAERS Safety Report 10038127 (Version 2)
Quarter: 2014Q4

REPORT INFORMATION
  Report Type: Spontaneous
  Country: US (occurrence: US)
  Receive Date: 20140326
  Receipt Date: 20141111
  Transmission Date: 20150528
  Serious: Yes (Life-Threatening, Hospitalization)
  Sender: FDA-Public Use
  Company Number: US-BAYER-2014-045645

PATIENT
  Age: 37 Year
  Sex: Female

DRUGS (1)
  1. MIRENA [Suspect]
     Active Substance: LEVONORGESTREL
     Indication: CONTRACEPTION
     Dosage: 20 MCG/24HR, CONT
     Route: 015
     Dates: start: 20040513, end: 20071107

REACTIONS (12)
  - Pregnancy with contraceptive device [None]
  - Injury [Recovered/Resolved]
  - Pain [Recovered/Resolved]
  - Post procedural discomfort [None]
  - Pelvic adhesions [None]
  - General physical health deterioration [Recovered/Resolved]
  - Anhedonia [None]
  - Anxiety [None]
  - Device dislocation [Recovered/Resolved]
  - Emotional distress [None]
  - Bladder injury [None]
  - Drug ineffective [None]

NARRATIVE: CASE EVENT DATE: 20040513
